FAERS Safety Report 17978721 (Version 2)
Quarter: 2020Q3

REPORT INFORMATION
  Report Type: Spontaneous
  Country: CN (occurrence: CN)
  Receive Date: 20200703
  Receipt Date: 20200709
  Transmission Date: 20201103
  Serious: Yes (Hospitalization, Other)
  Sender: FDA-Public Use
  Company Number: CN-ASTRAZENECA-2020SE82470

PATIENT
  Age: 23575 Day
  Sex: Male
  Weight: 60 kg

DRUGS (4)
  1. XIN WEINING (TIROFIBAN HYDROCHLORIDE) [Suspect]
     Active Substance: TIROFIBAN HYDROCHLORIDE
     Indication: PLATELET AGGREGATION TEST
     Route: 042
     Dates: start: 20200611, end: 20200612
  2. BRILINTA [Suspect]
     Active Substance: TICAGRELOR
     Indication: PLATELET AGGREGATION TEST
     Route: 048
     Dates: start: 20200610, end: 20200622
  3. BAYASPIRIN [Suspect]
     Active Substance: ASPIRIN
     Indication: PLATELET AGGREGATION TEST
     Route: 048
     Dates: start: 20200611, end: 20200612
  4. BAYASPIRIN [Suspect]
     Active Substance: ASPIRIN
     Indication: PLATELET AGGREGATION TEST
     Route: 048
     Dates: start: 20200610, end: 20200611

REACTIONS (2)
  - Faeces discoloured [Recovering/Resolving]
  - Anaemia [Recovering/Resolving]

NARRATIVE: CASE EVENT DATE: 20200612
